FAERS Safety Report 7474987-7 (Version None)
Quarter: 2011Q2

REPORT INFORMATION
  Report Type: 
  Country: None (occurrence: None)
  Receive Date: 20110512
  Receipt Date: 20110325
  Transmission Date: 20111010
  Serious: Yes (Hospitalization, Other)
  Sender: FDA-Public Use
  Company Number: US-BAYER-201037146NA

PATIENT
  Age: 22 Year
  Sex: Female
  Weight: 83.447 kg

DRUGS (2)
  1. YASMIN [Suspect]
     Dosage: UNK
     Route: 048
     Dates: start: 20060701, end: 20070129
  2. YASMIN [Suspect]
     Dosage: UNK UNK, UNK
     Route: 048
     Dates: start: 20040501, end: 20050701

REACTIONS (7)
  - EMOTIONAL DISTRESS [None]
  - PULMONARY EMBOLISM [None]
  - MENTAL DISORDER [None]
  - PAIN [None]
  - ANXIETY [None]
  - DEPRESSION [None]
  - CHOLELITHIASIS [None]
